FAERS Safety Report 16682821 (Version 1)
Quarter: 2019Q3

REPORT INFORMATION
  Report Type: Report from Study
  Country: US (occurrence: US)
  Receive Date: 20190808
  Receipt Date: 20190808
  Transmission Date: 20191004
  Serious: Yes (Other)
  Sender: FDA-Public Use
  Company Number: US-BAYER-2019-143363

PATIENT
  Sex: Male

DRUGS (7)
  1. STIVARGA [Suspect]
     Active Substance: REGORAFENIB
     Indication: PRODUCT USED FOR UNKNOWN INDICATION
     Dosage: DAILY DOSE 120 MG (3 DAILY FOR 21 DAYS)
     Route: 048
  2. DEXTROAMPHETAMINE [DEXAMFETAMINE] [Concomitant]
     Active Substance: DEXTROAMPHETAMINE
     Dosage: DAILY DOSE 10 MG
  3. FINASTERIDE. [Concomitant]
     Active Substance: FINASTERIDE
     Dosage: DAILY DOSE 5 MG
  4. IBUPROFEN. [Concomitant]
     Active Substance: IBUPROFEN
     Dosage: DAILY DOSE 800 MG
  5. SUBSYS [Concomitant]
     Active Substance: FENTANYL
     Dosage: 200 MCG
  6. MORPHINE SULFATE. [Concomitant]
     Active Substance: MORPHINE SULFATE
     Dosage: DAILY DOSE 30 MG
  7. TAMSULOSIN HCL [Concomitant]
     Active Substance: TAMSULOSIN HYDROCHLORIDE
     Dosage: DAILY DOSE .4 MG

REACTIONS (5)
  - Palmar-plantar erythrodysaesthesia syndrome [None]
  - Off label use [None]
  - Blister [None]
  - Neuropathy peripheral [None]
  - Skin exfoliation [None]
